FAERS Safety Report 4698325-8 (Version None)
Quarter: 2005Q2

REPORT INFORMATION
  Report Type: 
  Country: None (occurrence: None)
  Receive Date: 20050623
  Receipt Date: 20050614
  Transmission Date: 20051028
  Serious: Yes (Death)
  Sender: FDA-Public Use
  Company Number: US-ABBOTT-05P-163-0303766-00

PATIENT
  Age: 54 Year
  Sex: Male

DRUGS (2)
  1. OMNICEF [Suspect]
     Indication: BRONCHITIS
     Route: 048
     Dates: start: 20050221, end: 20050303
  2. OMNICEF [Suspect]
     Indication: PHARYNGITIS

REACTIONS (2)
  - CLOSTRIDIUM COLITIS [None]
  - SEPTIC SHOCK [None]
